FAERS Safety Report 6223892-2 (Version None)
Quarter: 2009Q2

REPORT INFORMATION
  Report Type: 
  Country: None (occurrence: None)
  Receive Date: 20090611
  Receipt Date: 20090304
  Transmission Date: 20091009
  Serious: No
  Sender: FDA-Public Use
  Company Number: US-ABBOTT-09P-163-0560491-00

PATIENT
  Sex: Female
  Weight: 120.31 kg

DRUGS (1)
  1. HUMIRA [Suspect]
     Indication: CROHN'S DISEASE
     Route: 058
     Dates: start: 20090126, end: 20090210

REACTIONS (5)
  - FATIGUE [None]
  - GAIT DISTURBANCE [None]
  - GENERALISED OEDEMA [None]
  - JOINT STIFFNESS [None]
  - PAIN [None]
